FAERS Safety Report 21118146 (Version 5)
Quarter: 2022Q4

REPORT INFORMATION
  Report Type: Spontaneous
  Country: SE (occurrence: SE)
  Receive Date: 20220722
  Receipt Date: 20221221
  Transmission Date: 20230112
  Serious: Yes (Life-Threatening, Hospitalization)
  Sender: FDA-Public Use
  Company Number: SE-UNITED THERAPEUTICS-UNT-2022-015713

PATIENT

DRUGS (3)
  1. REMODULIN [Suspect]
     Active Substance: TREPROSTINIL
     Indication: Pulmonary arterial hypertension
     Dosage: 0.046 ?G/KG, CONTINUING
     Route: 041
     Dates: end: 20220713
  2. REMODULIN [Suspect]
     Active Substance: TREPROSTINIL
     Dosage: UNK, CONTINUING [RESTARTED AT REDUCED DOSE]
     Route: 041
     Dates: start: 20220715, end: 202207
  3. REMODULIN [Suspect]
     Active Substance: TREPROSTINIL
     Dosage: UNK, CONTINUING [INCREASED DOSE]
     Route: 041
     Dates: start: 202207, end: 20220726

REACTIONS (11)
  - Blood pressure decreased [Recovered/Resolved]
  - Accidental overdose [Recovered/Resolved]
  - Headache [Recovered/Resolved]
  - Nausea [Recovered/Resolved]
  - Flushing [Recovered/Resolved]
  - Erythema [Recovered/Resolved]
  - Liquid product physical issue [Unknown]
  - Device issue [Unknown]
  - Device leakage [Unknown]
  - Injection site mass [Recovered/Resolved]
  - Injection site swelling [Recovered/Resolved]

NARRATIVE: CASE EVENT DATE: 20220701
